FAERS Safety Report 6245067-3 (Version None)
Quarter: 2009Q2

REPORT INFORMATION
  Report Type: 
  Country: None (occurrence: None)
  Receive Date: 20090625
  Receipt Date: 20090617
  Transmission Date: 20091009
  Serious: Yes (Other)
  Sender: FDA-Public Use
  Company Number: US-ELI_LILLY_AND_COMPANY-US200906004130

PATIENT
  Sex: Female

DRUGS (1)
  1. FORTEO [Suspect]
     Dosage: 20 UG, DAILY (1/D)
     Route: 058
     Dates: start: 20090601, end: 20090601

REACTIONS (9)
  - BACK PAIN [None]
  - BLOOD PRESSURE INCREASED [None]
  - DYSPNOEA [None]
  - ERYTHEMA [None]
  - EXPIRED DRUG ADMINISTERED [None]
  - FEELING ABNORMAL [None]
  - GAIT DISTURBANCE [None]
  - TACHYCARDIA [None]
  - TREMOR [None]
